FAERS Safety Report 7931177-9 (Version None)
Quarter: 2011Q4

REPORT INFORMATION
  Report Type: 
  Country: None (occurrence: None)
  Receive Date: 20111121
  Receipt Date: 20111109
  Transmission Date: 20120403
  Serious: Yes (Other)
  Sender: FDA-Public Use
  Company Number: ES-ELI_LILLY_AND_COMPANY-ES201110001489

PATIENT
  Sex: Female
  Weight: 112 kg

DRUGS (5)
  1. ACETAMINOPHEN [Concomitant]
     Indication: PAIN
     Dosage: 650 MG, BID
     Route: 048
  2. INTERFERON [Concomitant]
     Indication: OSTEOPOROSIS
  3. HIDROFEROL [Concomitant]
     Indication: OSTEOPOROSIS
     Dosage: 1.5 MG, WEEKLY (1/W)
     Route: 048
  4. FORTEO [Suspect]
     Indication: OSTEOPOROSIS
     Dosage: 20 UG, QD
     Route: 058
     Dates: start: 20100505
  5. IBERCAL [Concomitant]
     Indication: OSTEOPOROSIS
     Dosage: UNK, BID
     Route: 048

REACTIONS (10)
  - NAUSEA [None]
  - NASAL CONGESTION [None]
  - MOVEMENT DISORDER [None]
  - TREMOR [None]
  - DIZZINESS [None]
  - WEIGHT INCREASED [None]
  - THIRST [None]
  - HEADACHE [None]
  - OVERDOSE [None]
  - POLYURIA [None]
